FAERS Safety Report 9759658 (Version 2)
Quarter: 2013Q4

REPORT INFORMATION
  Report Type: Spontaneous
  Country: US (occurrence: US)
  Receive Date: 20131216
  Receipt Date: 20131216
  Transmission Date: 20140711
  Serious: No
  Sender: FDA-Public Use
  Company Number: US-GILEAD-2010-0028191

PATIENT
  Age: 55 Year
  Sex: Female
  Weight: 104.33 kg

DRUGS (6)
  1. LETAIRIS [Suspect]
     Indication: PULMONARY ARTERIAL HYPERTENSION
     Route: 048
     Dates: start: 20100227, end: 20100430
  2. CARVEDIOL [Concomitant]
  3. AMIODARONE [Concomitant]
  4. ASPIRIN [Concomitant]
  5. GLYBURIDE [Concomitant]
  6. METFORMIN [Concomitant]

REACTIONS (2)
  - Oedema peripheral [Recovering/Resolving]
  - Local swelling [Recovering/Resolving]
